FAERS Safety Report 14625756 (Version 5)
Quarter: 2018Q4

REPORT INFORMATION
  Report Type: Spontaneous
  Country: CA (occurrence: CA)
  Receive Date: 20180312
  Receipt Date: 20181005
  Transmission Date: 20190204
  Serious: Yes (Other)
  Sender: FDA-Public Use
  Company Number: CA-PFIZER INC-2015423650

PATIENT
  Age: 69 Year
  Sex: Female

DRUGS (11)
  1. XELJANZ [Suspect]
     Active Substance: TOFACITINIB CITRATE
     Dosage: 5 MG, 2X/DAY
     Route: 048
     Dates: start: 20180417, end: 201808
  2. ASPIRIN 81 [Concomitant]
     Active Substance: ASPIRIN
     Dosage: 81 MG, 1X/DAY
     Dates: start: 201509
  3. XELJANZ [Suspect]
     Active Substance: TOFACITINIB CITRATE
     Dosage: 5 MG, 2X/DAY
     Route: 048
     Dates: end: 201712
  4. PREDNISONE. [Suspect]
     Active Substance: PREDNISONE
     Dosage: 5 MG, UNK
  5. PREDNISONE. [Suspect]
     Active Substance: PREDNISONE
     Dosage: 4 MG, DAILY
     Dates: start: 20151007
  6. VITAMIN D3 [Concomitant]
     Active Substance: CHOLECALCIFEROL
     Dosage: 2 VITAMINS PER DAY
     Dates: start: 201508
  7. XELJANZ [Suspect]
     Active Substance: TOFACITINIB CITRATE
     Dosage: 5 MG, 2X/DAY
     Route: 048
     Dates: start: 20160702, end: 201612
  8. PREDNISONE. [Suspect]
     Active Substance: PREDNISONE
     Dosage: 10 MG, UNK
     Dates: start: 2014
  9. XELJANZ [Suspect]
     Active Substance: TOFACITINIB CITRATE
     Indication: RHEUMATOID ARTHRITIS
     Dosage: 5 MG, 2X/DAY
     Route: 048
     Dates: start: 20151011
  10. LOSEC [Concomitant]
     Active Substance: OMEPRAZOLE
     Dosage: 20 MG, 1X/DAY
     Dates: start: 201502
  11. EZETROL [Concomitant]
     Active Substance: EZETIMIBE
     Dosage: 10 MG, 1X/DAY
     Dates: start: 201512

REACTIONS (18)
  - Hypertension [Not Recovered/Not Resolved]
  - Spinal pain [Recovering/Resolving]
  - Pain [Recovering/Resolving]
  - Palpitations [Unknown]
  - Fatigue [Unknown]
  - Increased appetite [Recovered/Resolved]
  - Hernia [Not Recovered/Not Resolved]
  - Musculoskeletal stiffness [Not Recovered/Not Resolved]
  - Influenza [Unknown]
  - Cardiac fibrillation [Unknown]
  - Emphysema [Not Recovered/Not Resolved]
  - Hunger [Recovered/Resolved]
  - Pneumonia [Unknown]
  - Drug effect incomplete [Unknown]
  - Weight increased [Recovered/Resolved]
  - Herpes zoster [Unknown]
  - Nerve injury [Not Recovered/Not Resolved]
  - Blood cholesterol increased [Not Recovered/Not Resolved]

NARRATIVE: CASE EVENT DATE: 2014
